FAERS Safety Report 9382451 (Version 1)
Quarter: 2013Q3

REPORT INFORMATION
  Report Type: Spontaneous
  Country: US (occurrence: US)
  Receive Date: 20130703
  Receipt Date: 20130703
  Transmission Date: 20140515
  Serious: Yes (Other)
  Sender: FDA-Public Use
  Company Number: US-UCBSA-084922

PATIENT
  Age: 50 Year
  Sex: Female
  Weight: 90.26 kg

DRUGS (1)
  1. CIMZIA [Suspect]
     Indication: RHEUMATOID ARTHRITIS
     Dates: start: 201201, end: 2013

REACTIONS (1)
  - Gastrooesophageal reflux disease [Not Recovered/Not Resolved]
